FAERS Safety Report 25478120 (Version 1)
Quarter: 2025Q2

REPORT INFORMATION
  Report Type: Spontaneous
  Country: TT (occurrence: TT)
  Receive Date: 20250625
  Receipt Date: 20250625
  Transmission Date: 20250716
  Serious: Yes (Other)
  Sender: ROCHE
  Company Number: TT-ROCHE-10000318150

PATIENT
  Age: 72 Year
  Sex: Female

DRUGS (3)
  1. BEVACIZUMAB [Suspect]
     Active Substance: BEVACIZUMAB
     Indication: Neovascular age-related macular degeneration
     Route: 065
  2. AFLIBERCEPT [Concomitant]
     Active Substance: AFLIBERCEPT
  3. FARICIMAB [Concomitant]
     Active Substance: FARICIMAB

REACTIONS (4)
  - Off label use [Unknown]
  - Neovascular age-related macular degeneration [Unknown]
  - Detachment of retinal pigment epithelium [Unknown]
  - Visual acuity reduced [Unknown]
